FAERS Safety Report 21087693 (Version 1)
Quarter: 2022Q3

REPORT INFORMATION
  Report Type: Spontaneous
  Country: US (occurrence: None)
  Receive Date: 20220715
  Receipt Date: 20220715
  Transmission Date: 20221027
  Serious: No
  Sender: FDA-Public Use
  Company Number: 2022A225760

PATIENT
  Sex: Female
  Weight: 90.7 kg

DRUGS (8)
  1. BUDESONIDE\FORMOTEROL\GLYCOPYRRONIUM [Suspect]
     Active Substance: BUDESONIDE\FORMOTEROL\GLYCOPYRRONIUM
     Indication: Influenza like illness
     Dosage: 2 PUFFS TWO TIMES A DAY
     Route: 055
     Dates: start: 202204
  2. BUDESONIDE\FORMOTEROL\GLYCOPYRRONIUM [Suspect]
     Active Substance: BUDESONIDE\FORMOTEROL\GLYCOPYRRONIUM
     Indication: Dyspnoea
     Dosage: 2 PUFFS TWO TIMES A DAY
     Route: 055
     Dates: start: 202204
  3. BUDESONIDE\FORMOTEROL\GLYCOPYRRONIUM [Suspect]
     Active Substance: BUDESONIDE\FORMOTEROL\GLYCOPYRRONIUM
     Indication: Cough
     Dosage: 2 PUFFS TWO TIMES A DAY
     Route: 055
     Dates: start: 202204
  4. BUDESONIDE\FORMOTEROL\GLYCOPYRRONIUM [Suspect]
     Active Substance: BUDESONIDE\FORMOTEROL\GLYCOPYRRONIUM
     Indication: Off label use
     Dosage: 2 PUFFS TWO TIMES A DAY
     Route: 055
     Dates: start: 202204
  5. BUDESONIDE\FORMOTEROL\GLYCOPYRRONIUM [Suspect]
     Active Substance: BUDESONIDE\FORMOTEROL\GLYCOPYRRONIUM
     Indication: Influenza like illness
     Dosage: 1 PUFFS TWO TIMES A DAY
     Route: 055
     Dates: start: 202204
  6. BUDESONIDE\FORMOTEROL\GLYCOPYRRONIUM [Suspect]
     Active Substance: BUDESONIDE\FORMOTEROL\GLYCOPYRRONIUM
     Indication: Dyspnoea
     Dosage: 1 PUFFS TWO TIMES A DAY
     Route: 055
     Dates: start: 202204
  7. BUDESONIDE\FORMOTEROL\GLYCOPYRRONIUM [Suspect]
     Active Substance: BUDESONIDE\FORMOTEROL\GLYCOPYRRONIUM
     Indication: Cough
     Dosage: 1 PUFFS TWO TIMES A DAY
     Route: 055
     Dates: start: 202204
  8. BUDESONIDE\FORMOTEROL\GLYCOPYRRONIUM [Suspect]
     Active Substance: BUDESONIDE\FORMOTEROL\GLYCOPYRRONIUM
     Indication: Off label use
     Dosage: 1 PUFFS TWO TIMES A DAY
     Route: 055
     Dates: start: 202204

REACTIONS (5)
  - Oropharyngeal pain [Unknown]
  - Dysphonia [Not Recovered/Not Resolved]
  - Inability to afford medication [Not Recovered/Not Resolved]
  - Off label use [Not Recovered/Not Resolved]
  - Drug effective for unapproved indication [Unknown]
